FAERS Safety Report 8871632 (Version 1)
Quarter: 2012Q4

REPORT INFORMATION
  Report Type: Report from Study
  Country: GB (occurrence: GB)
  Receive Date: 20121029
  Receipt Date: 20121029
  Transmission Date: 20130627
  Serious: Yes (Death)
  Sender: FDA-Public Use
  Company Number: GB-ROCHE-1149605

PATIENT
  Sex: Female

DRUGS (1)
  1. RITUXIMAB [Suspect]
     Indication: RHEUMATOID ARTHRITIS
     Dosage: last dose prior to SAE: /Nov/2011
     Route: 050

REACTIONS (6)
  - Cardiac failure [Fatal]
  - Intestinal ischaemia [Fatal]
  - Chronic obstructive pulmonary disease [Fatal]
  - Diverticulum [Fatal]
  - Atrial fibrillation [Fatal]
  - Myocardial ischaemia [Fatal]
